FAERS Safety Report 5060049-5 (Version None)
Quarter: 2006Q3

REPORT INFORMATION
  Report Type: 
  Country: None (occurrence: None)
  Receive Date: 20060724
  Receipt Date: 20060710
  Transmission Date: 20061208
  Serious: Yes (Hospitalization)
  Sender: FDA-Public Use
  Company Number: US-AMGEN-US185964

PATIENT
  Sex: Female

DRUGS (1)
  1. ENBREL [Suspect]
     Indication: PSORIASIS
     Route: 058
     Dates: start: 20060501, end: 20060515

REACTIONS (7)
  - ASTHENIA [None]
  - CARDIAC ARREST [None]
  - CONDITION AGGRAVATED [None]
  - DYSPNOEA [None]
  - HERPES ZOSTER [None]
  - INJECTION SITE ERYTHEMA [None]
  - PSORIASIS [None]
